FAERS Safety Report 25003901 (Version 2)
Quarter: 2025Q1

REPORT INFORMATION
  Report Type: Spontaneous
  Country: GB (occurrence: GB)
  Receive Date: 20250224
  Receipt Date: 20250324
  Transmission Date: 20250409
  Serious: Yes (Life-Threatening, Hospitalization, Disabling, Other)
  Sender: ADVANZ PHARMA
  Company Number: None

PATIENT

DRUGS (1)
  1. PREDNISOLONE [Suspect]
     Active Substance: PREDNISOLONE
     Indication: Autoimmune hepatitis
     Dates: start: 2011

REACTIONS (2)
  - Adrenocortical insufficiency acute [Not Recovered/Not Resolved]
  - Steroid withdrawal syndrome [Unknown]

NARRATIVE: CASE EVENT DATE: 20200101
